FAERS Safety Report 8892217 (Version 1)
Quarter: 2012Q4

REPORT INFORMATION
  Report Type: 
  Country: GB (occurrence: GB)
  Receive Date: 20121107
  Receipt Date: 20121107
  Transmission Date: 20130627
  Serious: Yes (Other)
  Sender: FDA-Public Use
  Company Number: GB-PFIZER INC-2012275693

PATIENT
  Age: 34 Year
  Sex: Female

DRUGS (3)
  1. CHAMPIX [Suspect]
     Indication: SMOKING CESSATION THERAPY
     Route: 048
     Dates: start: 20120924, end: 20120927
  2. CHAMPIX [Suspect]
     Route: 048
     Dates: start: 20120928, end: 20121002
  3. CHAMPIX [Suspect]
     Route: 048
     Dates: start: 20121003, end: 20121022

REACTIONS (3)
  - Tearfulness [Recovered/Resolved]
  - Depressed mood [Recovered/Resolved]
  - Insomnia [Recovered/Resolved]
